FAERS Safety Report 6180661-X (Version None)
Quarter: 2009Q2

REPORT INFORMATION
  Report Type: 
  Country: None (occurrence: None)
  Receive Date: 20090506
  Receipt Date: 20090428
  Transmission Date: 20091009
  Serious: Yes (Other)
  Sender: FDA-Public Use
  Company Number: US-ASTRAZENECA-2009UW10564

PATIENT
  Sex: Male

DRUGS (14)
  1. NEXIUM [Suspect]
     Route: 048
     Dates: start: 20010101, end: 20090101
  2. PLAVIX [Suspect]
     Dates: start: 20020101
  3. FAMOTIDINE [Concomitant]
  4. POTASSIUM CHLORIDE [Concomitant]
  5. LASIX [Concomitant]
  6. METOPROLOL SUCCINATE [Concomitant]
  7. CARDIZEM [Concomitant]
  8. ALLEGRA D 24 HOUR [Concomitant]
  9. FLOMAX [Concomitant]
  10. SIMVASTATIN [Concomitant]
  11. FINASTERIDE [Concomitant]
  12. ASPIRIN [Concomitant]
  13. DARVOCET [Concomitant]
  14. COMBIVENT [Concomitant]

REACTIONS (2)
  - ATRIOVENTRICULAR BLOCK [None]
  - STENT PLACEMENT [None]
